FAERS Safety Report 16383311 (Version 2)
Quarter: 2019Q4

REPORT INFORMATION
  Report Type: Spontaneous
  Country: US (occurrence: US)
  Receive Date: 20190603
  Receipt Date: 20191216
  Transmission Date: 20200122
  Serious: No
  Sender: FDA-Public Use
  Company Number: US-PFIZER INC-2019228471

PATIENT
  Age: 52 Year
  Sex: Female

DRUGS (9)
  1. LEVOFLOXACIN. [Suspect]
     Active Substance: LEVOFLOXACIN
     Dosage: UNK
  2. MORPHINE SULFATE. [Suspect]
     Active Substance: MORPHINE SULFATE
     Dosage: UNK
  3. PINEAPPLE EXTRACT [Suspect]
     Active Substance: BROMELAINS
     Dosage: UNK
  4. CEPHALOSPORIN C [Suspect]
     Active Substance: CEPHALOSPORIN C
     Dosage: UNK
  5. TRAZODONE [Suspect]
     Active Substance: TRAZODONE HYDROCHLORIDE
     Dosage: UNK
  6. CEFUROXIME. [Suspect]
     Active Substance: CEFUROXIME
     Dosage: UNK
  7. SALMETEROL [Suspect]
     Active Substance: SALMETEROL
     Dosage: UNK
  8. FLUTICASONE PROPIONATE. [Suspect]
     Active Substance: FLUTICASONE PROPIONATE
     Dosage: UNK
  9. CEFUROXIME AXETIL. [Suspect]
     Active Substance: CEFUROXIME AXETIL
     Dosage: UNK

REACTIONS (1)
  - Drug hypersensitivity [Unknown]
